FAERS Safety Report 8486147-1 (Version None)
Quarter: 2012Q3

REPORT INFORMATION
  Report Type: 
  Country: None (occurrence: None)
  Receive Date: 20120703
  Receipt Date: 20120629
  Transmission Date: 20120928
  Serious: Yes (Hospitalization)
  Sender: FDA-Public Use
  Company Number: US-GLAXOSMITHKLINE-A0982830A

PATIENT
  Age: 71 Year
  Sex: Male

DRUGS (3)
  1. NICODERM CQ [Suspect]
     Indication: SMOKING CESSATION THERAPY
     Dates: start: 20120628, end: 20120629
  2. NICODERM CQ [Suspect]
     Indication: SMOKING CESSATION THERAPY
     Dosage: 14MG PER DAY
     Route: 062
  3. POLYPHARMACY [Concomitant]

REACTIONS (11)
  - APPLICATION SITE RASH [None]
  - APPLICATION SITE PRURITUS [None]
  - MYOCARDIAL INFARCTION [None]
  - CARDIAC FAILURE CONGESTIVE [None]
  - MEMORY IMPAIRMENT [None]
  - APPLICATION SITE PAIN [None]
  - FEELING ABNORMAL [None]
  - NIGHTMARE [None]
  - DRUG ADMINISTRATION ERROR [None]
  - ATRIAL FIBRILLATION [None]
  - DRUG INEFFECTIVE [None]
